FAERS Safety Report 7831981-1 (Version None)
Quarter: 2011Q4

REPORT INFORMATION
  Report Type: 
  Country: None (occurrence: None)
  Receive Date: 20111021
  Receipt Date: 20110926
  Transmission Date: 20120403
  Serious: Yes (Hospitalization)
  Sender: FDA-Public Use
  Company Number: DE-ROCHE-718031

PATIENT
  Sex: Female
  Weight: 68 kg

DRUGS (3)
  1. LEVOTHYROXINE SODIUM [Concomitant]
     Dosage: TDD 125
  2. AVASTIN [Suspect]
     Indication: BREAST CANCER
     Dosage: FREQUENCY: 3QW  LAST DOSE PRIOR TO SAE: 21 JULY 2010 PERMANENTLY DISCONTINUED
     Route: 042
     Dates: start: 20100401, end: 20100730
  3. DOCETAXEL [Suspect]
     Indication: BREAST CANCER
     Dosage: FREQUENCY: 3QW  LAST DOSE PRIOR TO SAE: 21 JULY 2010 PERMANENTLY DISCONTINUED
     Route: 042
     Dates: start: 20100630, end: 20100730

REACTIONS (2)
  - COORDINATION ABNORMAL [None]
  - POLYNEUROPATHY [None]
